FAERS Safety Report 13388266 (Version 6)
Quarter: 2017Q2

REPORT INFORMATION
  Report Type: Spontaneous
  Country: US (occurrence: US)
  Receive Date: 20170330
  Receipt Date: 20170411
  Transmission Date: 20170830
  Serious: Yes (Other)
  Sender: FDA-Public Use
  Company Number: US-GLAXOSMITHKLINE-US2017043673

PATIENT
  Age: 52 Year
  Sex: Male

DRUGS (5)
  1. ALBUTEROL. [Concomitant]
     Active Substance: ALBUTEROL
  2. PREDNISONE. [Concomitant]
     Active Substance: PREDNISONE
  3. ADVAIR DISKUS [Suspect]
     Active Substance: FLUTICASONE PROPIONATE\SALMETEROL XINAFOATE
     Indication: ASTHMA
     Dosage: 1 PUFF(S), BID
     Dates: start: 201606
  4. FLOVENT DISKUS [Suspect]
     Active Substance: FLUTICASONE PROPIONATE
     Indication: PRODUCT USED FOR UNKNOWN INDICATION
     Dosage: 1 PUFF(S), BID
  5. ADVAIR DISKUS [Suspect]
     Active Substance: FLUTICASONE PROPIONATE\SALMETEROL XINAFOATE
     Indication: HISTOPLASMOSIS

REACTIONS (11)
  - Bronchial secretion retention [Unknown]
  - Dyspnoea [Unknown]
  - Cough [Unknown]
  - Muscle spasms [Unknown]
  - Condition aggravated [Unknown]
  - Pulmonary congestion [Unknown]
  - Viral upper respiratory tract infection [Unknown]
  - Drug ineffective [Unknown]
  - Medication error [Unknown]
  - Product use in unapproved indication [Unknown]
  - Productive cough [Unknown]

NARRATIVE: CASE EVENT DATE: 201606
